FAERS Safety Report 5320263-8 (Version None)
Quarter: 2007Q2

REPORT INFORMATION
  Report Type: 
  Country: None (occurrence: None)
  Receive Date: 20070502
  Receipt Date: 20070420
  Transmission Date: 20071010
  Serious: Yes (Other)
  Sender: FDA-Public Use
  Company Number: 20070105 /

PATIENT
  Age: 77 Year
  Sex: Female
  Weight: 73.4827 kg

DRUGS (2)
  1. VENOFER [Suspect]
     Indication: ANAEMIA
     Dosage: 500 MG X 1 INTRAVENOUS
     Route: 042
     Dates: start: 20070407
  2. VENOFER [Suspect]
     Indication: ANAEMIA
     Dosage: 500 MG X 1 INTRAVENOUS
     Route: 042
     Dates: start: 20070408

REACTIONS (2)
  - INJECTION SITE REACTION [None]
  - PHLEBITIS [None]
